FAERS Safety Report 12883037 (Version 2)
Quarter: 2016Q4

REPORT INFORMATION
  Report Type: Report from Study
  Country: GB (occurrence: GB)
  Receive Date: 20161025
  Receipt Date: 20161214
  Transmission Date: 20170207
  Serious: Yes (Hospitalization)
  Sender: FDA-Public Use
  Company Number: GB-AMGEN-GBRCT2016147917

PATIENT
  Age: 52 Year
  Sex: Female

DRUGS (5)
  1. PEMBROLIZUMAB. [Suspect]
     Active Substance: PEMBROLIZUMAB
     Indication: SQUAMOUS CELL CARCINOMA OF HEAD AND NECK
     Dosage: 200 MG, Q3WK
     Route: 042
     Dates: start: 20160818
  2. COCODAMOL [Concomitant]
     Active Substance: ACETAMINOPHEN\CODEINE PHOSPHATE
     Dosage: UNK
     Route: 048
  3. TALIMOGENE LAHERPAREPVEC [Suspect]
     Active Substance: TALIMOGENE LAHERPAREPVEC
     Indication: SQUAMOUS CELL CARCINOMA OF HEAD AND NECK
     Dosage: 4 ML, Q3WK
     Route: 026
     Dates: start: 20160818
  4. PREGABALIN. [Concomitant]
     Active Substance: PREGABALIN
     Dosage: UNK
     Route: 048
  5. THYROXINE [Concomitant]
     Active Substance: LEVOTHYROXINE
     Dosage: UNK
     Route: 048
     Dates: start: 2001

REACTIONS (1)
  - Stridor [Recovered/Resolved]

NARRATIVE: CASE EVENT DATE: 20160823
